FAERS Safety Report 23877119 (Version 2)
Quarter: 2024Q2

REPORT INFORMATION
  Report Type: Spontaneous
  Country: US (occurrence: US)
  Receive Date: 20240521
  Receipt Date: 20240524
  Transmission Date: 20240716
  Serious: No
  Sender: FDA-Public Use
  Company Number: US-BAUSCH-BL-2024-007849

PATIENT
  Age: 84 Year
  Sex: Female
  Weight: 88.984 kg

DRUGS (2)
  1. PRIMIDONE [Suspect]
     Active Substance: PRIMIDONE
     Indication: Seizure prophylaxis
     Dosage: TOOK 1 TABLET (DOSE: 250 MG)
     Route: 065
     Dates: start: 20240508, end: 20240508
  2. GLUCOSAMINE [Concomitant]
     Active Substance: GLUCOSAMINE
     Indication: Product used for unknown indication
     Route: 065

REACTIONS (6)
  - Drug hypersensitivity [Unknown]
  - Gait disturbance [Unknown]
  - Tremor [Unknown]
  - Condition aggravated [Unknown]
  - Feeling abnormal [Unknown]
  - Contraindicated product administered [Unknown]

NARRATIVE: CASE EVENT DATE: 20240508
